FAERS Safety Report 24362953 (Version 5)
Quarter: 2024Q4

REPORT INFORMATION
  Report Type: Spontaneous
  Country: US (occurrence: US)
  Receive Date: 20240925
  Receipt Date: 20241111
  Transmission Date: 20250115
  Serious: No
  Sender: PFIZER
  Company Number: US-PFIZER INC-PV202400124205

PATIENT
  Age: 67 Year
  Sex: Female

DRUGS (3)
  1. TUKYSA [Suspect]
     Active Substance: TUCATINIB
     Dosage: 150 MG
  2. TUKYSA [Suspect]
     Active Substance: TUCATINIB
     Dosage: 50MG 6 TABLETS TWICE A DAY
  3. ELIQUIS [Concomitant]
     Active Substance: APIXABAN
     Dosage: 2.5 MG, DAILY

REACTIONS (1)
  - Dysphagia [Unknown]
